FAERS Safety Report 5010448-2 (Version None)
Quarter: 2006Q2

REPORT INFORMATION
  Report Type: 
  Country: None (occurrence: None)
  Receive Date: 20060525
  Receipt Date: 20060419
  Transmission Date: 20061013
  Serious: Yes (Hospitalization)
  Sender: FDA-Public Use
  Company Number: PHHO2006GR06249

PATIENT
  Age: 31 Year
  Sex: Male
  Weight: 55 kg

DRUGS (7)
  1. ICL670 VS FERRIPROX [Suspect]
     Indication: HAEMOSIDEROSIS
     Dosage: 1750 MG DAILY
     Route: 048
     Dates: start: 20040226, end: 20050203
  2. ICL670 VS FERRIPROX [Suspect]
     Dosage: NO TREATMENT
     Dates: start: 20050204, end: 20050212
  3. ICL670 VS FERRIPROX [Suspect]
     Dosage: 1750 MG, QD
     Dates: start: 20050213
  4. ICL670 VS FERRIPROX [Suspect]
     Dosage: NO TREATMENT
     Dates: end: 20051115
  5. ICL670 VS FERRIPROX [Suspect]
     Dosage: 1750 MG, QD
     Route: 048
     Dates: start: 20051116, end: 20051208
  6. ICL670 VS FERRIPROX [Suspect]
     Dosage: NO TREATMENT
     Dates: start: 20051209, end: 20051217
  7. ICL670 VS FERRIPROX [Suspect]
     Dosage: 1750 MG, QD
     Route: 048
     Dates: start: 20051218, end: 20060413

REACTIONS (4)
  - DIARRHOEA [None]
  - GASTROENTERITIS [None]
  - HEADACHE [None]
  - PYREXIA [None]
